FAERS Safety Report 6023714-9 (Version None)
Quarter: 2008Q4

REPORT INFORMATION
  Report Type: 
  Country: None (occurrence: None)
  Receive Date: 20081223
  Receipt Date: 20081215
  Transmission Date: 20090506
  Serious: Yes (Hospitalization)
  Sender: FDA-Public Use
  Company Number: TCI2008A06254

PATIENT
  Age: 66 Year
  Sex: Male

DRUGS (4)
  1. ACTOS [Suspect]
     Indication: TYPE 2 DIABETES MELLITUS
     Dosage: 15 MG (15 MG, 1 D) , PER ORAL
     Route: 048
     Dates: start: 20080912
  2. DIURETICS [Concomitant]
  3. CALCIUM CHANNEL BLOCKERB [Concomitant]
  4. HMG COA REDUCTASE INHIBITORS [Concomitant]

REACTIONS (1)
  - LACUNAR INFARCTION [None]
